FAERS Safety Report 5917265-7 (Version None)
Quarter: 2008Q4

REPORT INFORMATION
  Report Type: 
  Country: None (occurrence: None)
  Receive Date: 20081014
  Receipt Date: 20080930
  Transmission Date: 20090506
  Serious: Yes (Hospitalization, Other)
  Sender: FDA-Public Use
  Company Number: US-ELI_LILLY_AND_COMPANY-US200809006812

PATIENT
  Sex: Female

DRUGS (4)
  1. FORTEO [Suspect]
     Indication: OSTEOPOROSIS
     Dosage: UNK, UNK
     Dates: start: 20080601
  2. VITAMINS NOS [Concomitant]
  3. LEXAPRO [Concomitant]
     Dosage: 10 MG, EACH EVENING
  4. CALCIUM CARBONATE [Concomitant]

REACTIONS (1)
  - BREAST CANCER [None]
